FAERS Safety Report 8660640 (Version 6)
Quarter: 2020Q3

REPORT INFORMATION
  Report Type: Report from Study
  Country: JP (occurrence: JP)
  Receive Date: 20120711
  Receipt Date: 20130104
  Transmission Date: 20201105
  Serious: Yes (Hospitalization)
  Sender: FDA-Public Use
  Company Number: JP-009507513-1201USA01403

PATIENT
  Age: 70 Year
  Sex: Female
  Weight: 42.1 kg

DRUGS (24)
  1. PEGINTERFERON ALFA?2B [Suspect]
     Active Substance: PEGINTERFERON ALFA-2B
     Indication: CHRONIC HEPATITIS C
     Dosage: 80 MICROGRAM, QW
     Dates: start: 20111207, end: 20111227
  2. VANIPREVIR. [Suspect]
     Active Substance: VANIPREVIR
     Indication: CHRONIC HEPATITIS C
     Dosage: 300 MG, BID
     Route: 048
     Dates: start: 20111207, end: 20111230
  3. FORTEO [Concomitant]
     Active Substance: TERIPARATIDE
     Indication: OSTEOPOROSIS
     Dosage: 20 MICROGRAM, QD
     Route: 058
     Dates: start: 20110530
  4. RINDERON V [Concomitant]
     Active Substance: BETAMETHASONE VALERATE
     Indication: URTICARIA
     Dosage: UNK UNK, PRN
     Route: 062
     Dates: start: 20120321
  5. HIRUDOID [Concomitant]
     Active Substance: GLYCOSAMINOGLYCANS
     Indication: URTICARIA
     Dosage: UNK UNK, PRN
     Route: 062
     Dates: start: 20120509
  6. PEGINTERFERON ALFA?2B [Suspect]
     Active Substance: PEGINTERFERON ALFA-2B
     Dosage: 54 MICROGRAM, QW
     Dates: start: 20120207, end: 20120207
  7. RIBAVIRIN. [Suspect]
     Active Substance: RIBAVIRIN
     Dosage: UNK
     Dates: start: 20120117, end: 20120521
  8. TALION (BEPOTASTINE BESYLATE) [Concomitant]
     Active Substance: BEPOTASTINE BESYLATE
     Indication: URTICARIA
     Dosage: 10 MG, BID
     Route: 048
     Dates: start: 20120321
  9. SELBEX [Concomitant]
     Active Substance: TEPRENONE
     Indication: PYREXIA
     Dosage: UNK, PRN
     Route: 048
     Dates: start: 20111207
  10. VANIPREVIR. [Suspect]
     Active Substance: VANIPREVIR
     Dosage: 300 MG, BID
     Dates: start: 20120417, end: 20120424
  11. PEGINTERFERON ALFA?2B [Suspect]
     Active Substance: PEGINTERFERON ALFA-2B
     Dosage: 80 MICROGRAM, QW
     Dates: start: 20120214, end: 20120221
  12. PEGINTERFERON ALFA?2B [Suspect]
     Active Substance: PEGINTERFERON ALFA-2B
     Dosage: 54 MICROGRAM, QW
     Dates: start: 20120228, end: 20120228
  13. PEGINTERFERON ALFA?2B [Suspect]
     Active Substance: PEGINTERFERON ALFA-2B
     Dosage: 80 MICROGRAM, QW
     Dates: start: 20120306, end: 20120515
  14. MOHRUS [Concomitant]
     Active Substance: KETOPROFEN
     Indication: ARTHRALGIA
     Dosage: UNK, PRN
     Route: 062
     Dates: start: 20110927
  15. PRIMPERAN [Concomitant]
     Active Substance: METOCLOPRAMIDE HYDROCHLORIDE
     Indication: NAUSEA
     Dosage: 10 MG, BID
     Route: 048
     Dates: start: 20111212
  16. GASMOTIN [Concomitant]
     Active Substance: MOSAPRIDE CITRATE
     Indication: NAUSEA
     Dosage: 5 MG, TID
     Route: 048
     Dates: start: 20120327
  17. VANIPREVIR. [Suspect]
     Active Substance: VANIPREVIR
     Dosage: 300 MG, BID
     Dates: start: 20120117, end: 20120403
  18. PEGINTERFERON ALFA?2B [Suspect]
     Active Substance: PEGINTERFERON ALFA-2B
     Dosage: 80 MICROGRAM, QW
     Dates: start: 20120117, end: 20120131
  19. RIBAVIRIN. [Suspect]
     Active Substance: RIBAVIRIN
     Indication: CHRONIC HEPATITIS C
     Dosage: UNK
     Dates: start: 20111207, end: 20111231
  20. GASTER [Concomitant]
     Active Substance: FAMOTIDINE
     Indication: GASTRITIS PROPHYLAXIS
     Dosage: 20 MG, QD
     Route: 048
     Dates: start: 20110627
  21. ALLEGRA [Concomitant]
     Active Substance: FEXOFENADINE HYDROCHLORIDE
     Indication: URTICARIA
     Dosage: 60 MG, BID
     Route: 048
     Dates: start: 20110412
  22. VANIPREVIR. [Suspect]
     Active Substance: VANIPREVIR
     Dosage: 300 MG, BID
     Dates: start: 20120425, end: 20120521
  23. CELECOX [Concomitant]
     Active Substance: CELECOXIB
     Indication: ARTHRALGIA
     Dosage: 100 MG, BID
     Route: 048
     Dates: start: 20110627
  24. LOXOPROFEN [Concomitant]
     Active Substance: LOXOPROFEN
     Indication: PYREXIA
     Dosage: UNK, PRN
     Route: 048
     Dates: start: 20111207

REACTIONS (1)
  - Chondrocalcinosis pyrophosphate [Recovered/Resolved]

NARRATIVE: CASE EVENT DATE: 20120524
